FAERS Safety Report 20907332 (Version 2)
Quarter: 2022Q3

REPORT INFORMATION
  Report Type: Spontaneous
  Country: FR (occurrence: FR)
  Receive Date: 20220602
  Receipt Date: 20220714
  Transmission Date: 20221027
  Serious: Yes (Death, Hospitalization, Other)
  Sender: FDA-Public Use
  Company Number: FR-PFIZER INC-202200786365

PATIENT
  Age: 79 Year
  Sex: Male
  Weight: 104 kg

DRUGS (5)
  1. VYNDAQEL [Suspect]
     Active Substance: TAFAMIDIS MEGLUMINE
     Indication: Cardiac amyloidosis
     Dosage: 20 MG, DAILY
     Dates: start: 20190704, end: 20201121
  2. WARFARIN SODIUM [Concomitant]
     Active Substance: WARFARIN SODIUM
     Dosage: 2 MG IN THE EVENING EVEN DAYS,3 MG IN THE EVENING ODD DAYS
  3. CORDARONE [Concomitant]
     Active Substance: AMIODARONE HYDROCHLORIDE
     Dosage: 200 MG IN THE MORNING
  4. POTASSIUM CHLORIDE [Concomitant]
     Active Substance: POTASSIUM CHLORIDE
     Dosage: 600 IN THE MORNING, AT NOON AND IN THE EVENING
  5. BUMETANIDE [Concomitant]
     Active Substance: BUMETANIDE
     Dosage: 1 MG IN THE MORNING, AT NOON AND IN THE EVENING

REACTIONS (2)
  - Death [Fatal]
  - Cardioversion [Unknown]

NARRATIVE: CASE EVENT DATE: 20201121
